FAERS Safety Report 22520098 (Version 1)
Quarter: 2023Q2

REPORT INFORMATION
  Report Type: Spontaneous
  Country: GB (occurrence: GB)
  Receive Date: 20230605
  Receipt Date: 20230605
  Transmission Date: 20230721
  Serious: Yes (Other)
  Sender: FDA-Public Use
  Company Number: GB-ROCHE-3350270

PATIENT
  Sex: Female

DRUGS (6)
  1. CARBOPLATIN [Suspect]
     Active Substance: CARBOPLATIN
     Indication: Burkitt^s lymphoma
     Dosage: UNKNOWN
     Route: 065
     Dates: start: 20230328, end: 20230425
  2. ETOPOSIDE [Suspect]
     Active Substance: ETOPOSIDE
     Indication: Burkitt^s lymphoma
     Dosage: UNKNOWN
     Route: 065
     Dates: start: 20230328, end: 20230425
  3. IFOSFAMIDE [Suspect]
     Active Substance: IFOSFAMIDE
     Indication: Burkitt^s lymphoma
     Dosage: UNKNOWN
     Route: 065
     Dates: start: 20230328, end: 20230425
  4. RITUXIMAB [Suspect]
     Active Substance: RITUXIMAB
     Indication: Burkitt^s lymphoma
     Dosage: UNKNOWN
     Route: 065
     Dates: start: 20230328, end: 20230425
  5. RITUXIMAB [Suspect]
     Active Substance: RITUXIMAB
     Dosage: UNKNOWN
     Route: 065
     Dates: start: 20220818, end: 20230101
  6. CASPOFUNGIN [Concomitant]
     Active Substance: CASPOFUNGIN
     Indication: Product used for unknown indication
     Dosage: UNKNOWN
     Route: 065

REACTIONS (4)
  - Disease progression [Unknown]
  - Blood lactate dehydrogenase increased [Unknown]
  - Infection [Recovered/Resolved]
  - Febrile neutropenia [Recovered/Resolved]
